FAERS Safety Report 15604420 (Version 1)
Quarter: 2018Q4

REPORT INFORMATION
  Report Type: Report from Study
  Country: BR (occurrence: BR)
  Receive Date: 20181110
  Receipt Date: 20181110
  Transmission Date: 20190205
  Serious: Yes (Other)
  Sender: FDA-Public Use
  Company Number: PHHY2016BR126646

PATIENT
  Age: 67 Year
  Sex: Female
  Weight: 45.6 kg

DRUGS (9)
  1. ATACAND [Concomitant]
     Active Substance: CANDESARTAN CILEXETIL
     Indication: HYPERTENSION
     Dosage: 1 DF, QD (16 MG+ 12.5 MG)
     Route: 048
     Dates: start: 2014
  2. GLIFAGE [Concomitant]
     Active Substance: METFORMIN HYDROCHLORIDE
     Indication: PRODUCT USED FOR UNKNOWN INDICATION
     Route: 065
  3. SANDOSTATIN LAR DEPOT [Suspect]
     Active Substance: OCTREOTIDE ACETATE
     Indication: HEPATIC MASS
     Dosage: 30 MG, QMO 1 AMPOULE (EVERY 28 DAYS)
     Route: 030
     Dates: start: 20130707
  4. SANDOSTATIN LAR DEPOT [Suspect]
     Active Substance: OCTREOTIDE ACETATE
     Indication: NEUROENDOCRINE TUMOUR
     Dosage: 30 MG, (EVERY 21 DAYS, 3 WEEKS)
     Route: 030
  5. ALENDRONATE [Concomitant]
     Active Substance: ALENDRONATE SODIUM
     Indication: OSTEOPOROSIS
     Dosage: 1 DF, QW
     Route: 048
     Dates: start: 2012
  6. CALCIUM [Concomitant]
     Active Substance: CALCIUM
     Indication: BONE DENSITY DECREASED
     Dosage: 1 DF, QD
     Route: 048
     Dates: start: 2012
  7. VITAMIN D [Concomitant]
     Active Substance: CHOLECALCIFEROL
     Indication: OSTEOPOROSIS
     Dosage: 1 DF, QW
     Route: 048
     Dates: start: 2012
  8. SANDOSTATIN LAR DEPOT [Suspect]
     Active Substance: OCTREOTIDE ACETATE
     Dosage: 30 MG, QMO
     Route: 030
  9. SANDOSTATIN LAR DEPOT [Suspect]
     Active Substance: OCTREOTIDE ACETATE
     Indication: METASTASES TO LIVER
     Dosage: 30 MG, QMO
     Route: 030
     Dates: start: 20130707

REACTIONS (25)
  - Insomnia [Recovering/Resolving]
  - Glucose tolerance impaired [Unknown]
  - Weight decreased [Not Recovered/Not Resolved]
  - Thyroid mass [Not Recovered/Not Resolved]
  - Hypotonia [Recovering/Resolving]
  - Urine analysis abnormal [Recovering/Resolving]
  - Product use in unapproved indication [Unknown]
  - Disturbance in attention [Recovering/Resolving]
  - Grip strength decreased [Unknown]
  - Balance disorder [Recovering/Resolving]
  - Tension [Unknown]
  - Erythema [Unknown]
  - Malignant neoplasm progression [Recovering/Resolving]
  - Blood urine present [Unknown]
  - Memory impairment [Recovering/Resolving]
  - Ear infection [Recovering/Resolving]
  - Emotional distress [Recovering/Resolving]
  - Stress [Recovering/Resolving]
  - Agitation [Unknown]
  - Psychomotor hyperactivity [Unknown]
  - Hypertension [Unknown]
  - Hypoaesthesia [Not Recovered/Not Resolved]
  - Inappropriate schedule of product administration [Recovered/Resolved]
  - Deafness [Recovering/Resolving]
  - Lipodystrophy acquired [Not Recovered/Not Resolved]

NARRATIVE: CASE EVENT DATE: 2017
